FAERS Safety Report 13648349 (Version 18)
Quarter: 2018Q3

REPORT INFORMATION
  Report Type: Report from Study
  Country: US (occurrence: US)
  Receive Date: 20170613
  Receipt Date: 20180817
  Transmission Date: 20181010
  Serious: Yes (Hospitalization, Other)
  Sender: FDA-Public Use
  Company Number: PHHY2017US085223

PATIENT
  Age: 7 Year
  Sex: Female
  Weight: 66 kg

DRUGS (36)
  1. RELAFEN [Suspect]
     Active Substance: NABUMETONE
     Dosage: 750 MG, QD
     Route: 065
     Dates: start: 20151118, end: 20151209
  2. LORATADINE. [Concomitant]
     Active Substance: LORATADINE
     Indication: RHINITIS ALLERGIC
     Dosage: 10 MG, QD
     Route: 065
     Dates: start: 20161018
  3. PREDNISONE. [Concomitant]
     Active Substance: PREDNISONE
     Indication: STILL^S DISEASE
     Dosage: 40 MG, QD
     Route: 065
     Dates: start: 20160429
  4. CICLOSPORIN [Suspect]
     Active Substance: CYCLOSPORINE
     Dosage: 100 MG, QD
     Route: 065
     Dates: start: 20160826, end: 20160906
  5. FERROUS SULFATE. [Concomitant]
     Active Substance: FERROUS SULFATE
     Indication: ANAEMIA
     Dosage: 325 MG, QD
     Route: 065
     Dates: start: 201601
  6. CICLOSPORIN [Suspect]
     Active Substance: CYCLOSPORINE
     Dosage: 100 MG, QD
     Route: 065
     Dates: start: 20160309, end: 20160819
  7. CICLOSPORIN [Suspect]
     Active Substance: CYCLOSPORINE
     Dosage: 100 MG, QD
     Route: 065
     Dates: start: 20160412
  8. RELAFEN [Suspect]
     Active Substance: NABUMETONE
     Indication: STILL^S DISEASE
     Dosage: 500 MG, QD
     Route: 065
     Dates: start: 20151028, end: 20151118
  9. ACTEMRA [Suspect]
     Active Substance: TOCILIZUMAB
     Dosage: 460 MG, QD
     Route: 041
     Dates: start: 20170419, end: 20170420
  10. CLOTRIMAZOLE. [Concomitant]
     Active Substance: CLOTRIMAZOLE
     Indication: GENITAL RASH
     Dosage: 1 DF, QD (1 APPLICATION)
     Route: 065
     Dates: start: 20170524
  11. RANITIDINE. [Concomitant]
     Active Substance: RANITIDINE
     Indication: ABDOMINAL PAIN
     Dosage: 75 MG, QD
     Route: 065
     Dates: start: 20170524
  12. TYLENOL [Concomitant]
     Active Substance: ACETAMINOPHEN
     Indication: PRODUCT USED FOR UNKNOWN INDICATION
     Dosage: 812.5 MG, UNK
     Route: 065
     Dates: start: 20160706, end: 20160706
  13. VOLTAREN [Suspect]
     Active Substance: DICLOFENAC SODIUM
     Indication: STILL^S DISEASE
     Dosage: 100 MG, QD
     Route: 065
     Dates: start: 20151209, end: 20160113
  14. NAPROSYN [Suspect]
     Active Substance: NAPROXEN
     Indication: JUVENILE IDIOPATHIC ARTHRITIS
     Dosage: 500 MG, UNK
     Route: 065
     Dates: start: 20150901, end: 20151028
  15. ACTEMRA [Suspect]
     Active Substance: TOCILIZUMAB
     Dosage: UNK
     Route: 041
     Dates: start: 20160706
  16. ACTEMRA [Suspect]
     Active Substance: TOCILIZUMAB
     Dosage: 460 MG, QD
     Route: 041
     Dates: start: 20160823
  17. ACTEMRA [Suspect]
     Active Substance: TOCILIZUMAB
     Dosage: 460 MG, QD
     Route: 041
     Dates: start: 20170322, end: 20170419
  18. LORATADINE. [Concomitant]
     Active Substance: LORATADINE
     Indication: SEASONAL ALLERGY
  19. OMEPRAZOLE. [Concomitant]
     Active Substance: OMEPRAZOLE
     Indication: PROPHYLAXIS
     Dosage: 40 MG, QD
     Route: 065
     Dates: start: 201509, end: 20160413
  20. NAPROSYN [Suspect]
     Active Substance: NAPROXEN
     Dosage: 500 MG, QD
     Route: 065
     Dates: start: 20160113, end: 20160413
  21. ACTEMRA [Suspect]
     Active Substance: TOCILIZUMAB
     Dosage: 460 MG, UNK
     Route: 041
     Dates: start: 20170628
  22. ILARIS [Suspect]
     Active Substance: CANAKINUMAB
     Dosage: 180 MG, QD
     Route: 065
     Dates: start: 20160428, end: 20160608
  23. NAPROSYN [Suspect]
     Active Substance: NAPROXEN
     Dosage: 500 MG, UNK
     Route: 065
     Dates: start: 20160420
  24. KINERET [Suspect]
     Active Substance: ANAKINRA
     Indication: JUVENILE IDIOPATHIC ARTHRITIS
     Dosage: 100 MG, QD
     Route: 065
     Dates: start: 20160113, end: 20160211
  25. KINERET [Suspect]
     Active Substance: ANAKINRA
     Indication: HYPERTENSION
     Dosage: 100 MG, QD
     Route: 065
     Dates: start: 20160211, end: 20160224
  26. TRI?VITAMIN [Concomitant]
     Indication: PRODUCT USED FOR UNKNOWN INDICATION
     Dosage: 1 DF, QD
     Route: 065
     Dates: start: 20160912
  27. CICLOSPORIN [Suspect]
     Active Substance: CYCLOSPORINE
     Indication: STILL^S DISEASE
     Dosage: 100 MG, QD
     Route: 065
     Dates: start: 20160113, end: 20160211
  28. ILARIS [Suspect]
     Active Substance: CANAKINUMAB
     Indication: STILL^S DISEASE
     Dosage: 180 MG, QD
     Route: 065
     Dates: start: 20160325, end: 20160413
  29. ACTEMRA [Suspect]
     Active Substance: TOCILIZUMAB
     Indication: STILL^S DISEASE
     Dosage: 500 MG, QD
     Route: 041
     Dates: start: 20160621, end: 20160719
  30. HUMIRA [Suspect]
     Active Substance: ADALIMUMAB
     Indication: STILL^S DISEASE
     Dosage: 40 MG, QD
     Route: 065
     Dates: start: 20160106, end: 20160113
  31. MEDROL [Concomitant]
     Active Substance: METHYLPREDNISOLONE
     Indication: PRODUCT USED FOR UNKNOWN INDICATION
     Dosage: 40 MG, QD
     Route: 065
  32. MEDROL [Concomitant]
     Active Substance: METHYLPREDNISOLONE
     Dosage: 38 MG, QD
     Route: 065
  33. PREDNISOLONE ACETATE. [Concomitant]
     Active Substance: PREDNISOLONE ACETATE
     Indication: UVEITIS
     Dosage: 3 DRP, UNK
     Route: 065
     Dates: start: 201512
  34. CICLOSPORIN [Suspect]
     Active Substance: CYCLOSPORINE
     Dosage: 150 MG, QD
     Route: 065
     Dates: start: 20160211, end: 20160509
  35. PREDNISONE. [Concomitant]
     Active Substance: PREDNISONE
     Dosage: 5 MG, QD
     Route: 065
     Dates: start: 20170208
  36. DIPHENHYDRAMINE. [Concomitant]
     Active Substance: DIPHENHYDRAMINE
     Indication: PRODUCT USED FOR UNKNOWN INDICATION
     Dosage: UNK
     Route: 065
     Dates: start: 20160706, end: 20160706

REACTIONS (40)
  - Tenderness [Unknown]
  - Arthralgia [Recovering/Resolving]
  - Joint swelling [Recovering/Resolving]
  - Hepatic steatosis [Unknown]
  - Cough [Unknown]
  - Rash erythematous [Unknown]
  - Chills [Unknown]
  - Infection [Recovered/Resolved]
  - Activated partial thromboplastin time shortened [Unknown]
  - Nail bed bleeding [Recovered/Resolved]
  - Paronychia [Recovered/Resolved]
  - Hepatomegaly [Unknown]
  - Disorientation [Unknown]
  - Oropharyngeal pain [Unknown]
  - Wound secretion [Unknown]
  - Erythema [Unknown]
  - Pyrexia [Recovered/Resolved]
  - Abdominal pain [Unknown]
  - Headache [Unknown]
  - Alanine aminotransferase increased [Unknown]
  - Fatigue [Unknown]
  - Splenomegaly [Unknown]
  - Aspartate aminotransferase increased [Unknown]
  - Blood glucose increased [Unknown]
  - Dizziness [Unknown]
  - Obesity [Unknown]
  - Iron deficiency anaemia [Recovered/Resolved]
  - Onychalgia [Unknown]
  - Swelling [Unknown]
  - Escherichia urinary tract infection [Recovered/Resolved]
  - Flank pain [Unknown]
  - Weight increased [Unknown]
  - Gait inability [Recovering/Resolving]
  - Inflammation [Unknown]
  - Hypertension [Recovered/Resolved]
  - Paronychia [Recovered/Resolved]
  - Dysuria [Unknown]
  - Paronychia [Recovered/Resolved]
  - Onychalgia [Recovered/Resolved]
  - Blood urea increased [Unknown]

NARRATIVE: CASE EVENT DATE: 20160413
